FAERS Safety Report 7295221-7 (Version None)
Quarter: 2011Q1

REPORT INFORMATION
  Report Type: 
  Country: None (occurrence: None)
  Receive Date: 20110216
  Receipt Date: 20110107
  Transmission Date: 20110831
  Serious: No
  Sender: FDA-Public Use
  Company Number: A0900702A

PATIENT
  Sex: Male

DRUGS (2)
  1. LISINOPRIL [Concomitant]
  2. VOTRIENT [Suspect]
     Indication: RENAL CANCER
     Dosage: 200MG TWICE PER DAY
     Route: 048
     Dates: start: 20100811, end: 20100829

REACTIONS (7)
  - ABDOMINAL PAIN UPPER [None]
  - BLOOD PRESSURE ABNORMAL [None]
  - GASTROINTESTINAL DISORDER [None]
  - GLOSSITIS [None]
  - DECREASED APPETITE [None]
  - ORAL PAIN [None]
  - LETHARGY [None]
